FAERS Safety Report 5104941-1 (Version None)
Quarter: 2006Q3

REPORT INFORMATION
  Report Type: 
  Country: None (occurrence: None)
  Receive Date: 20060914
  Receipt Date: 20060907
  Transmission Date: 20061208
  Serious: Yes (Other)
  Sender: FDA-Public Use
  Company Number: DE-SANOFI-SYNTHELABO-A04200600895

PATIENT
  Sex: Male

DRUGS (2)
  1. GEMCITABINE [Concomitant]
     Indication: BILE DUCT CANCER
     Route: 041
     Dates: start: 20060901, end: 20060901
  2. ELOXATIN [Suspect]
     Indication: BILE DUCT CANCER
     Route: 041
     Dates: start: 20060901, end: 20060901

REACTIONS (3)
  - BLOOD BILIRUBIN INCREASED [None]
  - HEPATIC FAILURE [None]
  - TRANSAMINASES INCREASED [None]
